FAERS Safety Report 20161969 (Version 1)
Quarter: 2021Q4

REPORT INFORMATION
  Report Type: Spontaneous
  Country: CA (occurrence: CA)
  Receive Date: 20211208
  Receipt Date: 20211208
  Transmission Date: 20220303
  Serious: Yes (Life-Threatening, Hospitalization, Other)
  Sender: FDA-Public Use
  Company Number: CA-PFIZER INC-202101705535

PATIENT
  Age: 6 Year
  Sex: Female
  Weight: 24 kg

DRUGS (4)
  1. METHOTREXATE SODIUM [Suspect]
     Active Substance: METHOTREXATE SODIUM
     Indication: Chemotherapy
  2. CYTARABINE [Suspect]
     Active Substance: CYTARABINE
     Indication: Chemotherapy
  3. CYCLOPHOSPHAMIDE [Suspect]
     Active Substance: CYCLOPHOSPHAMIDE
     Indication: Chemotherapy
  4. THIOGUANINE [Suspect]
     Active Substance: THIOGUANINE
     Indication: Chemotherapy

REACTIONS (1)
  - Febrile neutropenia [Recovered/Resolved]
